FAERS Safety Report 25080948 (Version 1)
Quarter: 2025Q1

REPORT INFORMATION
  Report Type: Spontaneous
  Country: JP (occurrence: JP)
  Receive Date: 20250315
  Receipt Date: 20250315
  Transmission Date: 20250408
  Serious: Yes (Death)
  Sender: JOHNSON AND JOHNSON
  Company Number: JP-JNJFOC-20250331496

PATIENT
  Age: 46 Year
  Sex: Female

DRUGS (4)
  1. TRACLEER [Suspect]
     Active Substance: BOSENTAN
     Indication: Right-to-left cardiac shunt
     Dosage: DOSE UNKNOWN
     Route: 048
     Dates: end: 20250216
  2. ADCIRCA [Concomitant]
     Active Substance: TADALAFIL
     Indication: Product used for unknown indication
     Route: 048
     Dates: end: 20250216
  3. UPTRAVI [Concomitant]
     Active Substance: SELEXIPAG
     Indication: Product used for unknown indication
     Route: 048
     Dates: end: 20250216
  4. TREPROSTINIL [Concomitant]
     Active Substance: TREPROSTINIL
     Indication: Product used for unknown indication
     Route: 055
     Dates: start: 2025, end: 20250216

REACTIONS (2)
  - Right-to-left cardiac shunt [Fatal]
  - Off label use [Unknown]

NARRATIVE: CASE EVENT DATE: 20250114
